FAERS Safety Report 8952258 (Version 1)
Quarter: 2012Q4

REPORT INFORMATION
  Report Type: 
  Country: US (occurrence: US)
  Receive Date: 20121204
  Receipt Date: 20121204
  Transmission Date: 20130627
  Serious: No
  Sender: FDA-Public Use
  Company Number: US-ASTRAZENECA-2012SE80718

PATIENT
  Age: 70 Year
  Sex: Female
  Weight: 62.6 kg

DRUGS (1)
  1. CRESTOR [Suspect]
     Indication: BLOOD CHOLESTEROL INCREASED
     Route: 048
     Dates: start: 2011

REACTIONS (2)
  - Arthralgia [Unknown]
  - Blood cholesterol increased [Unknown]
